FAERS Safety Report 8173498-3 (Version None)
Quarter: 2012Q1

REPORT INFORMATION
  Report Type: 
  Country: None (occurrence: None)
  Receive Date: 20120227
  Receipt Date: 20120220
  Transmission Date: 20120608
  Serious: No
  Sender: FDA-Public Use
  Company Number: 2012SP009553

PATIENT
  Age: 40 Year
  Sex: Female

DRUGS (1)
  1. SAPHRIS [Suspect]
     Indication: BIPOLAR DISORDER
     Dosage: 10 MG;ONCE;SL
     Route: 060

REACTIONS (3)
  - DRUG HYPERSENSITIVITY [None]
  - SWOLLEN TONGUE [None]
  - DYSPHAGIA [None]
